FAERS Safety Report 7529835-3 (Version None)
Quarter: 2011Q2

REPORT INFORMATION
  Report Type: 
  Country: None (occurrence: None)
  Receive Date: 20110607
  Receipt Date: 20110518
  Transmission Date: 20111010
  Serious: No
  Sender: FDA-Public Use
  Company Number: US-JNJFOC-20110410453

PATIENT
  Age: 51 Year
  Sex: Female
  Weight: 61.69 kg

DRUGS (11)
  1. RISPERDAL [Concomitant]
     Indication: SCHIZOAFFECTIVE DISORDER
     Route: 048
     Dates: start: 20110418
  2. HYDROCHLOROTHIAZIDE [Concomitant]
     Indication: BLOOD PRESSURE
     Dates: start: 20110417
  3. MILK OF MAGNESIA TAB [Concomitant]
     Indication: CONSTIPATION
     Dates: start: 20110412
  4. ATIVAN [Concomitant]
     Indication: REFUSAL OF TREATMENT BY PATIENT
     Route: 030
  5. CORTISPORIN [Concomitant]
     Indication: EAR PAIN
     Route: 001
     Dates: start: 20110422
  6. LISINOPRIL [Concomitant]
     Indication: HYPERTENSION
     Dates: start: 20110419
  7. INVEGA SUSTENNA [Suspect]
     Indication: SCHIZOAFFECTIVE DISORDER BIPOLAR TYPE
     Route: 030
  8. ACETAMINOPHEN [Concomitant]
     Indication: PAIN
     Dates: start: 20110416, end: 20110417
  9. LITHIUM CARBONATE [Concomitant]
     Indication: BIPOLAR DISORDER
     Dates: start: 20110415
  10. NICOTINE GUM [Concomitant]
     Dates: start: 20110412
  11. ACETAMINOPHEN [Concomitant]
     Dates: start: 20110417

REACTIONS (2)
  - INCORRECT DOSE ADMINISTERED [None]
  - PRODUCT QUALITY ISSUE [None]
